FAERS Safety Report 7832004-0 (Version None)
Quarter: 2011Q4

REPORT INFORMATION
  Report Type: 
  Country: None (occurrence: None)
  Receive Date: 20111021
  Receipt Date: 20111018
  Transmission Date: 20120403
  Serious: Yes (Death)
  Sender: FDA-Public Use
  Company Number: ES-ROCHE-1005432

PATIENT
  Age: 77 Year
  Sex: Female
  Weight: 56.5 kg

DRUGS (2)
  1. PLACEBO [Suspect]
     Indication: RHEUMATOID ARTHRITIS
     Dosage: LAST DOSE PRIOR TO SAE: 14 SEP 2011.
     Route: 042
     Dates: start: 20110426
  2. ACTEMRA [Suspect]
     Indication: RHEUMATOID ARTHRITIS
     Dosage: LAST DOSE PRIOR TO SAE-05-OCT-2011
     Route: 058
     Dates: start: 20110426

REACTIONS (1)
  - SHOCK [None]
